FAERS Safety Report 13544541 (Version 2)
Quarter: 2017Q2

REPORT INFORMATION
  Report Type: Report from Study
  Country: None (occurrence: CA)
  Receive Date: 20170515
  Receipt Date: 20170612
  Transmission Date: 20170830
  Serious: Yes (Other)
  Sender: FDA-Public Use
  Company Number: CA-ABBVIE-17K-028-1973021-00

PATIENT
  Sex: Female

DRUGS (2)
  1. HUMIRA [Suspect]
     Active Substance: ADALIMUMAB
     Indication: PSORIASIS
     Route: 058
     Dates: start: 20130523, end: 201703
  2. HUMIRA [Suspect]
     Active Substance: ADALIMUMAB
     Dosage: INDUCTION DOSE
     Route: 058
     Dates: start: 20170608, end: 20170608

REACTIONS (3)
  - Influenza [Unknown]
  - Uterine disorder [Recovering/Resolving]
  - Viral upper respiratory tract infection [Unknown]

NARRATIVE: CASE EVENT DATE: 2017
